FAERS Safety Report 25402827 (Version 1)
Quarter: 2025Q2

REPORT INFORMATION
  Report Type: Spontaneous
  Country: US (occurrence: US)
  Receive Date: 20250605
  Receipt Date: 20250605
  Transmission Date: 20250717
  Serious: No
  Sender: ASCENDIS PHARMA
  Company Number: US-ASCENDIS PHARMA-2025US008513

PATIENT

DRUGS (1)
  1. YORVIPATH [Suspect]
     Active Substance: PALOPEGTERIPARATIDE
     Indication: Product used for unknown indication
     Route: 065
     Dates: start: 202402

REACTIONS (8)
  - Brain fog [Unknown]
  - Energy increased [Unknown]
  - Blood calcium decreased [Unknown]
  - Paraesthesia [Unknown]
  - Arthralgia [Unknown]
  - Blood phosphorus decreased [Unknown]
  - Muscle spasms [Unknown]
  - Injection site erythema [Unknown]

NARRATIVE: CASE EVENT DATE: 20240201
